FAERS Safety Report 16152813 (Version 2)
Quarter: 2019Q2

REPORT INFORMATION
  Report Type: Spontaneous
  Country: US (occurrence: US)
  Receive Date: 20190403
  Receipt Date: 20190521
  Transmission Date: 20190711
  Serious: No
  Sender: FDA-Public Use
  Company Number: US-ASTRAZENECA-2019SE38821

PATIENT
  Sex: Female
  Weight: 81.6 kg

DRUGS (1)
  1. SYMBICORT [Suspect]
     Active Substance: BUDESONIDE\FORMOTEROL FUMARATE DIHYDRATE
     Indication: CHRONIC OBSTRUCTIVE PULMONARY DISEASE
     Dosage: 1 PUFF IN THE EVENINGS
     Route: 055

REACTIONS (8)
  - Device issue [Unknown]
  - Circumstance or information capable of leading to medication error [Unknown]
  - Drug ineffective for unapproved indication [Unknown]
  - Weight decreased [Unknown]
  - Weight increased [Unknown]
  - Product use in unapproved indication [Not Recovered/Not Resolved]
  - Chest discomfort [Unknown]
  - Off label use [Not Recovered/Not Resolved]
